FAERS Safety Report 12223703 (Version 1)
Quarter: 2016Q1

REPORT INFORMATION
  Report Type: Spontaneous
  Country: US (occurrence: US)
  Receive Date: 20160330
  Receipt Date: 20160330
  Transmission Date: 20160526
  Serious: Yes (Death)
  Sender: FDA-Public Use
  Company Number: US-ACTELION-A-US2016-133510

PATIENT
  Age: 59 Year
  Sex: Female

DRUGS (1)
  1. VELETRI [Suspect]
     Active Substance: EPOPROSTENOL
     Indication: PULMONARY ARTERIAL HYPERTENSION
     Dosage: 10.1 NG/KG, PER MIN
     Route: 042
     Dates: start: 20150906

REACTIONS (1)
  - Death [Fatal]

NARRATIVE: CASE EVENT DATE: 20160315
